FAERS Safety Report 19787221 (Version 4)
Quarter: 2022Q2

REPORT INFORMATION
  Report Type: Spontaneous
  Country: JP (occurrence: JP)
  Receive Date: 20210903
  Receipt Date: 20220629
  Transmission Date: 20220721
  Serious: Yes (Death, Other)
  Sender: FDA-Public Use
  Company Number: JP-DSJP-DSJ-2021-122396

PATIENT
  Age: 72 Year
  Sex: Female
  Weight: 38 kg

DRUGS (3)
  1. ENHERTU [Suspect]
     Active Substance: FAM-TRASTUZUMAB DERUXTECAN-NXKI
     Indication: HER2 positive gastric cancer
     Dosage: 6.4 MG/KG, ONCE EVERY 3 WK
     Route: 041
     Dates: start: 20210622, end: 20210622
  2. ENHERTU [Suspect]
     Active Substance: FAM-TRASTUZUMAB DERUXTECAN-NXKI
     Dosage: 5.4 MG/KG, ONCE EVERY 3 WK
     Route: 041
     Dates: start: 20210727, end: 20210727
  3. ENHERTU [Suspect]
     Active Substance: FAM-TRASTUZUMAB DERUXTECAN-NXKI
     Dosage: 5.4 MG/KG, ONCE EVERY 3 WK
     Route: 041
     Dates: start: 20210817, end: 20210817

REACTIONS (8)
  - Death [Fatal]
  - Ascites [Not Recovered/Not Resolved]
  - Neutrophil count decreased [Recovered/Resolved]
  - Decreased appetite [Recovered/Resolved]
  - Abdominal distension [Unknown]
  - KL-6 increased [Unknown]
  - Oedema [Not Recovered/Not Resolved]
  - Malaise [Unknown]

NARRATIVE: CASE EVENT DATE: 20210727
